FAERS Safety Report 25958954 (Version 1)
Quarter: 2025Q4

REPORT INFORMATION
  Report Type: Report from Study
  Country: US (occurrence: US)
  Receive Date: 20251025
  Receipt Date: 20251025
  Transmission Date: 20260117
  Serious: Yes (Hospitalization)
  Sender: ABBVIE
  Company Number: US-ABBVIE-6512923

PATIENT
  Sex: Male

DRUGS (1)
  1. RINVOQ [Suspect]
     Active Substance: UPADACITINIB
     Indication: Product used for unknown indication
     Route: 048
     Dates: start: 20241030

REACTIONS (6)
  - Localised infection [Recovering/Resolving]
  - Pyrexia [Unknown]
  - Chills [Unknown]
  - Neuropathy peripheral [Unknown]
  - Limb injury [Unknown]
  - Foot fracture [Unknown]
